FAERS Safety Report 12751276 (Version 1)
Quarter: 2016Q3

REPORT INFORMATION
  Report Type: Spontaneous
  Country: NL (occurrence: NL)
  Receive Date: 20160915
  Receipt Date: 20160915
  Transmission Date: 20161109
  Serious: Yes (Other)
  Sender: FDA-Public Use
  Company Number: NL-JAZZ-2016-NL-014578

PATIENT

DRUGS (2)
  1. ERWINASE [Suspect]
     Active Substance: ASPARAGINASE ERWINIA CHRYSANTHEMI
     Indication: ACUTE LYMPHOCYTIC LEUKAEMIA
     Dosage: 20000 IU/M2, INTENSIFICATION - DOSE 17
  2. ERWINASE [Suspect]
     Active Substance: ASPARAGINASE ERWINIA CHRYSANTHEMI
     Dosage: 20000 IU/M2, DOSE 25

REACTIONS (3)
  - Rash [Unknown]
  - Hypersensitivity [Unknown]
  - Dyspnoea [Unknown]
